FAERS Safety Report 22309189 (Version 1)
Quarter: 2023Q2

REPORT INFORMATION
  Report Type: Spontaneous
  Country: US (occurrence: None)
  Receive Date: 20230511
  Receipt Date: 20230511
  Transmission Date: 20230722
  Serious: No
  Sender: FDA-Public Use
  Company Number: US-ROCHE-3248194

PATIENT
  Sex: Female

DRUGS (1)
  1. OCRELIZUMAB [Suspect]
     Active Substance: OCRELIZUMAB
     Indication: Multiple sclerosis
     Dosage: THE NEXT DOSE WILL BE IN 6 MONTHS AND IT WILL BE FOR THE DOSE OF 600MG.
     Route: 042
     Dates: start: 20221024, end: 20221107

REACTIONS (1)
  - Headache [Not Recovered/Not Resolved]
